FAERS Safety Report 23548079 (Version 1)
Quarter: 2024Q1

REPORT INFORMATION
  Report Type: Spontaneous
  Country: US (occurrence: US)
  Receive Date: 20240221
  Receipt Date: 20240221
  Transmission Date: 20240409
  Serious: Yes (Hospitalization)
  Sender: FDA-Public Use
  Company Number: US-STRIDES ARCOLAB LIMITED-2024SP002068

PATIENT
  Age: 25 Year
  Sex: Male

DRUGS (1)
  1. PREDNISOLONE [Suspect]
     Active Substance: PREDNISOLONE
     Indication: Giant cell myocarditis
     Dosage: UNK (PREDNISONE TAPER FROM 80 MG TO 7.5 MG DAILY OVER THE  COURSE OF ONE YEAR)
     Route: 065

REACTIONS (1)
  - Osteonecrosis [Recovered/Resolved]
